FAERS Safety Report 9403496 (Version 1)
Quarter: 2013Q3

REPORT INFORMATION
  Report Type: Spontaneous
  Country: US (occurrence: US)
  Receive Date: 20130716
  Receipt Date: 20130716
  Transmission Date: 20140515
  Serious: Yes (Hospitalization, Other)
  Sender: FDA-Public Use
  Company Number: US-RB-056075-13

PATIENT
  Age: 24 Year
  Sex: Female

DRUGS (4)
  1. SUBOXONE FILM [Suspect]
     Indication: DRUG DEPENDENCE
     Dosage: SUBOXONE FILM
     Route: 060
     Dates: start: 20121207, end: 2013
  2. SUBOXONE FILM [Suspect]
     Dosage: SUBOXONE FILM; MEDICALLY TAPERED FROM 24 MG DAILY TO 16 MG DAILY
     Route: 060
     Dates: start: 2013, end: 2013
  3. SUBOXONE FILM [Suspect]
     Dosage: SUBOXONE FILM; INTERMITTENTLY TOOK MORE THAN PRESCRIBED, UNKNOWN DOSE
     Route: 060
     Dates: start: 2013, end: 20130701
  4. KLONOPIN [Concomitant]
     Indication: ANXIETY
     Route: 048
     Dates: start: 201301

REACTIONS (8)
  - Underdose [Recovered/Resolved]
  - Drug withdrawal syndrome [Not Recovered/Not Resolved]
  - Wrong technique in drug usage process [Recovered/Resolved]
  - Extra dose administered [Recovered/Resolved]
  - Convulsion [Recovered/Resolved]
  - Hypertension [Recovered/Resolved]
  - Chills [Not Recovered/Not Resolved]
  - Tic [Not Recovered/Not Resolved]
